FAERS Safety Report 14371441 (Version 1)
Quarter: 2018Q1

REPORT INFORMATION
  Report Type: Spontaneous
  Country: FR (occurrence: FR)
  Receive Date: 20180110
  Receipt Date: 20180110
  Transmission Date: 20180509
  Serious: Yes (Other)
  Sender: FDA-Public Use
  Company Number: FR-MERCK KGAA-2039803

PATIENT
  Age: 79 Year
  Sex: Female
  Weight: 50 kg

DRUGS (7)
  1. DEROXAT [Concomitant]
     Active Substance: PAROXETINE HYDROCHLORIDE
  2. NOVOTHYROX [Suspect]
     Active Substance: LEVOTHYROXINE SODIUM
     Dates: start: 201708
  3. TEMESTA (LORAZEPAM) [Concomitant]
     Active Substance: LORAZEPAM
  4. NOVOTHYROX [Suspect]
     Active Substance: LEVOTHYROXINE SODIUM
     Indication: POST PROCEDURAL HYPOTHYROIDISM
     Dates: start: 201707
  5. PROPANOLOL [Concomitant]
     Active Substance: PROPRANOLOL HYDROCHLORIDE
  6. CHOLECALCIFEROL [Concomitant]
     Active Substance: CHOLECALCIFEROL
  7. PAROXETINE. [Concomitant]
     Active Substance: PAROXETINE

REACTIONS (20)
  - Suicidal ideation [Recovered/Resolved]
  - Fatigue [Recovered/Resolved]
  - Decreased appetite [Recovered/Resolved]
  - Self-injurious ideation [None]
  - Discomfort [None]
  - Muscle spasms [Recovered/Resolved]
  - Crying [None]
  - Agoraphobia [None]
  - Malaise [Recovered/Resolved]
  - Monocyte count increased [None]
  - Depressed mood [Recovered/Resolved]
  - Blood pressure decreased [Recovered/Resolved]
  - Feeling abnormal [Recovered/Resolved]
  - Diarrhoea [Recovered/Resolved]
  - Headache [Recovered/Resolved]
  - Hyperthyroidism [Recovered/Resolved]
  - Hot flush [None]
  - Malaise [Recovered/Resolved]
  - Abdominal discomfort [None]
  - Dizziness [None]

NARRATIVE: CASE EVENT DATE: 2017
